FAERS Safety Report 16802059 (Version 1)
Quarter: 2019Q3

REPORT INFORMATION
  Report Type: Spontaneous
  Country: US (occurrence: US)
  Receive Date: 20190912
  Receipt Date: 20190912
  Transmission Date: 20191005
  Serious: No
  Sender: FDA-Public Use
  Company Number: US-KOWA-19US000209

PATIENT

DRUGS (4)
  1. LEVOTHYROXINE. [Concomitant]
     Active Substance: LEVOTHYROXINE
     Indication: HYPOTHYROIDISM
     Dosage: 200 ?G, QD
  2. PROVENTOL [Concomitant]
     Active Substance: CROMOLYN SODIUM
     Indication: WHEEZING
     Dosage: 180 ?G, PRN
  3. LIVALO [Suspect]
     Active Substance: PITAVASTATIN CALCIUM
     Indication: HYPERLIPIDAEMIA
     Dosage: 1 MG, QD
     Dates: start: 201808
  4. BREO ELLIPTA [Concomitant]
     Active Substance: FLUTICASONE FUROATE\VILANTEROL TRIFENATATE
     Indication: CHRONIC OBSTRUCTIVE PULMONARY DISEASE
     Dosage: UNK UNK, QD

REACTIONS (3)
  - Low density lipoprotein decreased [Recovered/Resolved]
  - Blood cholesterol decreased [Recovered/Resolved]
  - High density lipoprotein decreased [Recovered/Resolved]

NARRATIVE: CASE EVENT DATE: 201808
